FAERS Safety Report 21767462 (Version 2)
Quarter: 2022Q4

REPORT INFORMATION
  Report Type: Spontaneous
  Country: JP (occurrence: JP)
  Receive Date: 20221222
  Receipt Date: 20221229
  Transmission Date: 20230112
  Serious: Yes (Hospitalization, Other)
  Sender: FDA-Public Use
  Company Number: JP-ORPHANEU-2022005661

PATIENT

DRUGS (29)
  1. ISTURISA [Suspect]
     Active Substance: OSILODROSTAT PHOSPHATE
     Indication: Cortisol decreased
     Dosage: 2 MILLIGRAM
     Route: 048
     Dates: start: 202207, end: 202207
  2. ISTURISA [Suspect]
     Active Substance: OSILODROSTAT PHOSPHATE
     Dosage: 2 MILLIGRAM, BID
     Route: 048
     Dates: start: 202207, end: 202207
  3. ISTURISA [Suspect]
     Active Substance: OSILODROSTAT PHOSPHATE
     Dosage: 16 MILLIGRAM/ DAY
     Route: 048
     Dates: start: 2022, end: 2022
  4. ISTURISA [Suspect]
     Active Substance: OSILODROSTAT PHOSPHATE
     Dosage: 20 MILLIGRAM/ DAY
     Route: 048
     Dates: start: 2022, end: 2022
  5. ISTURISA [Suspect]
     Active Substance: OSILODROSTAT PHOSPHATE
     Dosage: 21 MILLIGRAM/ DAY
     Route: 048
     Dates: start: 2022, end: 2022
  6. ISTURISA [Suspect]
     Active Substance: OSILODROSTAT PHOSPHATE
     Dosage: 22 MILLIGRAM/ DAY
     Route: 048
     Dates: start: 2022, end: 2022
  7. ISTURISA [Suspect]
     Active Substance: OSILODROSTAT PHOSPHATE
     Dosage: 20 MILLIGRAM/ DAY
     Route: 048
     Dates: start: 2022, end: 2022
  8. ISTURISA [Suspect]
     Active Substance: OSILODROSTAT PHOSPHATE
     Dosage: 16 MILLIGRAM/ DAY
     Route: 048
     Dates: start: 2022, end: 2022
  9. ISTURISA [Suspect]
     Active Substance: OSILODROSTAT PHOSPHATE
     Dosage: 13 MILLIGRAM/ DAY
     Route: 048
     Dates: start: 2022, end: 2022
  10. ISTURISA [Suspect]
     Active Substance: OSILODROSTAT PHOSPHATE
     Dosage: 12 MILLIGRAM/ DAY
     Route: 048
     Dates: start: 2022, end: 2022
  11. ISTURISA [Suspect]
     Active Substance: OSILODROSTAT PHOSPHATE
     Dosage: 9 MILLIGRAM/ DAY
     Route: 048
     Dates: start: 2022, end: 2022
  12. ISTURISA [Suspect]
     Active Substance: OSILODROSTAT PHOSPHATE
     Dosage: 8 MILLIGRAM/ DAY
     Route: 048
     Dates: start: 2022, end: 2022
  13. ISTURISA [Suspect]
     Active Substance: OSILODROSTAT PHOSPHATE
     Dosage: 7 MILLIGRAM/ DAY
     Route: 048
     Dates: start: 2022, end: 2022
  14. ISTURISA [Suspect]
     Active Substance: OSILODROSTAT PHOSPHATE
     Dosage: 6 MILLIGRAM/ DAY
     Route: 048
     Dates: start: 2022, end: 2022
  15. ISTURISA [Suspect]
     Active Substance: OSILODROSTAT PHOSPHATE
     Dosage: 5 MILLIGRAM/ DAY
     Route: 048
     Dates: start: 2022, end: 2022
  16. ISTURISA [Suspect]
     Active Substance: OSILODROSTAT PHOSPHATE
     Dosage: 4 MILLIGRAM PER A DAY
     Route: 048
     Dates: start: 2022, end: 2022
  17. ISTURISA [Suspect]
     Active Substance: OSILODROSTAT PHOSPHATE
     Dosage: 3 MILLIGRAM/ DAY
     Route: 048
     Dates: start: 2022, end: 2022
  18. ISTURISA [Suspect]
     Active Substance: OSILODROSTAT PHOSPHATE
     Dosage: 2 MILLIGRAM/ DAY
     Route: 048
     Dates: start: 2022, end: 2022
  19. ISTURISA [Suspect]
     Active Substance: OSILODROSTAT PHOSPHATE
     Dosage: 3 MILLIGRAM/ DAY
     Route: 048
     Dates: start: 2022, end: 2022
  20. ISTURISA [Suspect]
     Active Substance: OSILODROSTAT PHOSPHATE
     Dosage: 4 MILLIGRAM/ DAY
     Route: 048
     Dates: start: 2022, end: 2022
  21. ISTURISA [Suspect]
     Active Substance: OSILODROSTAT PHOSPHATE
     Dosage: 5 MILLIGRAM/ DAY
     Route: 048
     Dates: start: 2022, end: 2022
  22. ISTURISA [Suspect]
     Active Substance: OSILODROSTAT PHOSPHATE
     Dosage: 6 MILLIGRAM/ DAY
     Route: 048
     Dates: start: 2022, end: 2022
  23. ISTURISA [Suspect]
     Active Substance: OSILODROSTAT PHOSPHATE
     Dosage: 16 MILLIGRAM/ DAY
     Route: 048
     Dates: start: 2022, end: 2022
  24. ISTURISA [Suspect]
     Active Substance: OSILODROSTAT PHOSPHATE
     Dosage: 6 MILLIGRAM/ DAY
     Route: 048
     Dates: start: 2022, end: 2022
  25. FUROSEMIDE [Concomitant]
     Active Substance: FUROSEMIDE
     Indication: Product used for unknown indication
     Dosage: 20 MILLIGRAM, QD
     Route: 048
  26. SPIRONOLACTONE [Concomitant]
     Active Substance: SPIRONOLACTONE
     Indication: Product used for unknown indication
     Dosage: 25 MILLIGRAM, QD
     Route: 048
  27. ATORVASTATIN [Concomitant]
     Active Substance: ATORVASTATIN
     Indication: Product used for unknown indication
     Dosage: 10 MILLIGRAM, QD
     Route: 048
  28. LOXOPROFEN SODIUM DIHYDRATE [Concomitant]
     Active Substance: LOXOPROFEN SODIUM DIHYDRATE
     Indication: Product used for unknown indication
     Dosage: 60 MILLIGRAM, TID
     Route: 048
  29. REBAMIPIDE [Concomitant]
     Active Substance: REBAMIPIDE
     Indication: Product used for unknown indication
     Dosage: 100 MILLIGRAM, TID
     Route: 048

REACTIONS (4)
  - Muscular weakness [Unknown]
  - Cortisol free urine increased [Recovered/Resolved]
  - Cholelithiasis [Recovered/Resolved]
  - Biliary tract infection [Recovered/Resolved]

NARRATIVE: CASE EVENT DATE: 20220101
